FAERS Safety Report 14882898 (Version 2)
Quarter: 2018Q2

REPORT INFORMATION
  Report Type: Report from Study
  Country: US (occurrence: US)
  Receive Date: 20180511
  Receipt Date: 20180531
  Transmission Date: 20180711
  Serious: Yes (Other)
  Sender: FDA-Public Use
  Company Number: US-MYLANLABS-2018M1029958

PATIENT
  Sex: Female

DRUGS (3)
  1. NIKKI BIRTH CONTROL [Concomitant]
     Indication: CONTRACEPTION
     Dosage: UNK
     Dates: start: 201802, end: 20180424
  2. AMNESTEEM [Suspect]
     Active Substance: ISOTRETINOIN
     Indication: ORAL CONTRACEPTION
     Dosage: 80 MG, UNK
     Dates: start: 20180223, end: 20180425
  3. IBUROFEN [Concomitant]
     Active Substance: IBUPROFEN
     Indication: PRODUCT USED FOR UNKNOWN INDICATION
     Dosage: UNK
     Dates: start: 20180324, end: 20180324

REACTIONS (2)
  - Maternal exposure during pregnancy [Unknown]
  - Pregnancy on contraceptive [Unknown]
